FAERS Safety Report 24244852 (Version 1)
Quarter: 2024Q3

REPORT INFORMATION
  Report Type: Spontaneous
  Country: CN (occurrence: CN)
  Receive Date: 20240823
  Receipt Date: 20240823
  Transmission Date: 20241017
  Serious: Yes (Life-Threatening, Hospitalization)
  Sender: ROCHE
  Company Number: CN-BoehringerIngelheim-2024-BI-032662

PATIENT
  Age: 82 Year
  Sex: Male
  Weight: 66.0 kg

DRUGS (2)
  1. ALTEPLASE [Suspect]
     Active Substance: ALTEPLASE
     Indication: Cerebral artery stenosis
     Route: 042
     Dates: start: 20240530, end: 20240530
  2. ALTEPLASE [Suspect]
     Active Substance: ALTEPLASE
     Indication: Cerebral infarction
     Route: 042
     Dates: start: 20240530, end: 20240530

REACTIONS (6)
  - Cerebral haemorrhage [Recovering/Resolving]
  - Coma [Recovering/Resolving]
  - Depressed level of consciousness [Recovering/Resolving]
  - Restlessness [Recovering/Resolving]
  - Off label use [Unknown]
  - Off label use [Unknown]

NARRATIVE: CASE EVENT DATE: 20240530
